FAERS Safety Report 9432001 (Version 2)
Quarter: 2013Q3

REPORT INFORMATION
  Report Type: Spontaneous
  Country: US (occurrence: US)
  Receive Date: 20130731
  Receipt Date: 20130823
  Transmission Date: 20140515
  Serious: Yes (Hospitalization)
  Sender: FDA-Public Use
  Company Number: US-SANOFI-AVENTIS-2013SA075685

PATIENT
  Age: 78 Year
  Sex: Female

DRUGS (6)
  1. LANTUS SOLOSTAR [Suspect]
     Indication: TYPE 2 DIABETES MELLITUS
     Dosage: THERAPY START DATE: FROM COUPLE MONTHS, DOSAGE: 6 UNITS, 10 UNITS, 12 UNITS DOSE:8 UNIT(S)
     Route: 058
  2. LANTUS SOLOSTAR [Suspect]
     Indication: TYPE 2 DIABETES MELLITUS
     Dosage: THERAPY START DATE: FROM COUPLE MONTHS, DOSAGE: 6 UNITS, 10 UNITS, 12 UNITS DOSE:8 UNIT(S)
     Route: 058
  3. LANTUS SOLOSTAR [Suspect]
     Indication: TYPE 2 DIABETES MELLITUS
     Dosage: THERAPY START DATE: FROM COUPLE MONTHS, DOSAGE: 6 UNITS, 10 UNITS, 12 UNITS DOSE:8 UNIT(S)
     Route: 058
  4. SOLOSTAR [Concomitant]
     Indication: TYPE 2 DIABETES MELLITUS
  5. SOLOSTAR [Concomitant]
     Indication: TYPE 2 DIABETES MELLITUS
  6. SOLOSTAR [Concomitant]
     Indication: TYPE 2 DIABETES MELLITUS

REACTIONS (9)
  - Pleural effusion [Unknown]
  - Breast disorder [Unknown]
  - Adverse reaction [Unknown]
  - Abdominal pain upper [Unknown]
  - Back pain [Unknown]
  - Renal pain [Unknown]
  - Musculoskeletal pain [Unknown]
  - Constipation [Unknown]
  - Blood glucose increased [Unknown]
